FAERS Safety Report 5829330-3 (Version None)
Quarter: 2008Q3

REPORT INFORMATION
  Report Type: 
  Country: None (occurrence: None)
  Receive Date: 20080731
  Receipt Date: 20080724
  Transmission Date: 20090109
  Serious: Yes (Other)
  Sender: FDA-Public Use
  Company Number: US-BOEHRINGER INGELHEIM GMBH, GERMANY-2007-BP-26850BP

PATIENT
  Age: 73 Year
  Sex: Male

DRUGS (17)
  1. MOBIC [Suspect]
     Indication: OSTEOARTHRITIS
     Route: 048
     Dates: start: 20070828, end: 20080227
  2. MOBIC [Suspect]
     Route: 048
     Dates: start: 20070821, end: 20071120
  3. UNSPECIFIED NON-BI STUDY DRUG [Suspect]
     Indication: OSTEOARTHRITIS
     Dates: start: 20070807, end: 20071120
  4. POTASSIUM CITRATE [Concomitant]
  5. CALCIUM [Concomitant]
  6. ASCORBIC ACID [Concomitant]
  7. MULTI-VITAMIN [Concomitant]
  8. PRAVASTATIN [Concomitant]
  9. OMEPRAZOLE [Concomitant]
  10. DOCUSATE SODIUM [Concomitant]
  11. ERYTHROMYCIN [Concomitant]
  12. VANICREAM [Concomitant]
  13. METRONIDAZOLE CREAM [Concomitant]
  14. DESONIDE CREAM [Concomitant]
  15. UREA CREAM [Concomitant]
  16. SODIUM FLUORIDE GEL [Concomitant]
  17. POLYETHYLENE GLYCOL + PROPYLENE GLYCOL OPHTHALMIC SOLUTION [Concomitant]

REACTIONS (4)
  - BASAL CELL CARCINOMA [None]
  - HAEMANGIOMA [None]
  - PYOGENIC GRANULOMA [None]
  - SQUAMOUS CELL CARCINOMA [None]
